FAERS Safety Report 25650186 (Version 1)
Quarter: 2025Q3

REPORT INFORMATION
  Report Type: Spontaneous
  Country: US (occurrence: None)
  Receive Date: 20250806
  Receipt Date: 20250806
  Transmission Date: 20251021
  Serious: Yes (Hospitalization)
  Sender: FDA-CTU
  Company Number: None

PATIENT
  Age: 62 Year
  Sex: Male

DRUGS (1)
  1. RINVOQ [Suspect]
     Active Substance: UPADACITINIB
     Indication: Crohn^s disease
     Dosage: 30MG QD

REACTIONS (6)
  - Colectomy [None]
  - Post procedural infection [None]
  - Therapy cessation [None]
  - Colonic abscess [None]
  - Large intestine perforation [None]
  - Colitis [None]
